FAERS Safety Report 7746434-9 (Version None)
Quarter: 2011Q3

REPORT INFORMATION
  Report Type: 
  Country: None (occurrence: None)
  Receive Date: 20110912
  Receipt Date: 20110912
  Transmission Date: 20111222
  Serious: No
  Sender: FDA-Public Use
  Company Number: None

PATIENT
  Age: 64 Year
  Sex: Male
  Weight: 54 kg

DRUGS (10)
  1. PULMOZYME [Suspect]
     Indication: CHRONIC OBSTRUCTIVE PULMONARY DISEASE
     Dosage: 2.5 MG Q12H INH
     Route: 055
     Dates: start: 20110402, end: 20110402
  2. ADVAIR DISKUS 100/50 [Concomitant]
  3. LOVENOX [Concomitant]
  4. LEVAQUIN [Concomitant]
  5. DUONEB [Concomitant]
  6. SOLU-MEDROL [Concomitant]
  7. SIMVASTATIN [Concomitant]
  8. SPIRIVA [Concomitant]
  9. NORVASC [Concomitant]
  10. NICODERM [Concomitant]

REACTIONS (2)
  - DYSPNOEA [None]
  - ANXIETY [None]
